FAERS Safety Report 24680944 (Version 1)
Quarter: 2024Q4

REPORT INFORMATION
  Report Type: Spontaneous
  Country: US (occurrence: US)
  Receive Date: 20241129
  Receipt Date: 20241129
  Transmission Date: 20250115
  Serious: No
  Sender: SANOFI AVENTIS
  Company Number: US-SA-2024SA349993

PATIENT
  Age: 4 Year
  Sex: Male
  Weight: 13.64 kg

DRUGS (2)
  1. DUPIXENT [Suspect]
     Active Substance: DUPILUMAB
     Indication: Dermatitis atopic
     Dosage: 200 MG, Q4W
     Route: 058
  2. DEVICE [Concomitant]
     Active Substance: DEVICE
     Dosage: UNK

REACTIONS (1)
  - Therapeutic response decreased [Unknown]
